FAERS Safety Report 9027690 (Version 1)
Quarter: 2013Q1

REPORT INFORMATION
  Report Type: Spontaneous
  Country: DE (occurrence: DE)
  Receive Date: 20130124
  Receipt Date: 20130124
  Transmission Date: 20140127
  Serious: Yes (Hospitalization)
  Sender: FDA-Public Use
  Company Number: DE-ACCORD-016077

PATIENT
  Age: 48 Year
  Sex: Male

DRUGS (2)
  1. NALTREXONE [Suspect]
     Indication: DEPERSONALISATION
     Dates: start: 2008
  2. VENLAFAXINE [Suspect]
     Indication: DEPRESSION
     Dates: start: 2008

REACTIONS (3)
  - Bipolar I disorder [Recovered/Resolved]
  - Compulsive shopping [Recovered/Resolved]
  - Off label use [Unknown]
